FAERS Safety Report 13233229 (Version 1)
Quarter: 2017Q1

REPORT INFORMATION
  Report Type: Spontaneous
  Country: US (occurrence: US)
  Receive Date: 20170215
  Receipt Date: 20170215
  Transmission Date: 20170428
  Serious: No
  Sender: FDA-Public Use
  Company Number: US-TEVA-727900ACC

PATIENT
  Sex: Female

DRUGS (1)
  1. DOXYCYCLINE HYCLATE TABLET [Suspect]
     Active Substance: DOXYCYCLINE HYCLATE
     Dosage: 200 MILLIGRAM DAILY; ONE AND A HALF TABLETS TWICE A DAY

REACTIONS (2)
  - Abdominal discomfort [Unknown]
  - Vomiting [Unknown]
